FAERS Safety Report 8947286 (Version 1)
Quarter: 2012Q4

REPORT INFORMATION
  Report Type: 
  Country: ES (occurrence: ES)
  Receive Date: 20121205
  Receipt Date: 20121205
  Transmission Date: 20130627
  Serious: Yes (Other)
  Sender: FDA-Public Use
  Company Number: ES-BAYER-2012-127592

PATIENT
  Age: 79 Year
  Sex: Female

DRUGS (2)
  1. CIPROFLOXACIN [Suspect]
     Dosage: UNK
  2. AMOXICILLIN + CLAVULANIC ACID [Suspect]
     Dosage: UNK

REACTIONS (3)
  - Pseudomembranous colitis [Recovered/Resolved]
  - Bacteraemia [Recovered/Resolved]
  - Normochromic normocytic anaemia [None]
